FAERS Safety Report 13217248 (Version 1)
Quarter: 2017Q1

REPORT INFORMATION
  Report Type: Spontaneous
  Country: US (occurrence: US)
  Receive Date: 20170210
  Receipt Date: 20170210
  Transmission Date: 20170428
  Serious: No
  Sender: FDA-Public Use
  Company Number: US-ACORDA-ACO_121583_2016

PATIENT
  Age: 42 Year
  Sex: Female

DRUGS (2)
  1. AMPYRA [Suspect]
     Active Substance: DALFAMPRIDINE
     Indication: PRODUCT USED FOR UNKNOWN INDICATION
     Route: 065
  2. BACLOFEN. [Suspect]
     Active Substance: BACLOFEN
     Indication: PRODUCT USED FOR UNKNOWN INDICATION

REACTIONS (13)
  - Muscle spasticity [Unknown]
  - Hypersomnia [Unknown]
  - Fatigue [Unknown]
  - Headache [Unknown]
  - Arthralgia [Unknown]
  - Cognitive disorder [Unknown]
  - Muscle spasms [Unknown]
  - Depressed mood [Unknown]
  - Peroneal nerve palsy [Unknown]
  - Asthenia [Unknown]
  - Musculoskeletal pain [Unknown]
  - Multiple sclerosis [Unknown]
  - Tremor [Unknown]
